FAERS Safety Report 7968232-3 (Version None)
Quarter: 2011Q4

REPORT INFORMATION
  Report Type: 
  Country: None (occurrence: None)
  Receive Date: 20111209
  Receipt Date: 20111130
  Transmission Date: 20120403
  Serious: Yes (Other)
  Sender: FDA-Public Use
  Company Number: PHHY2011HR106089

PATIENT
  Age: 62 Year
  Sex: Female

DRUGS (1)
  1. EXFORGE [Suspect]
     Indication: HYPERTENSION
     Dosage: AMLODIPIN 5 MG, VALSARTAN MG 80 MG, QD
     Route: 048
     Dates: start: 20111101

REACTIONS (2)
  - CHEST DISCOMFORT [None]
  - MALAISE [None]
